FAERS Safety Report 11579797 (Version 1)
Quarter: 2015Q3

REPORT INFORMATION
  Report Type: Report from Study
  Country: US (occurrence: US)
  Receive Date: 20150930
  Receipt Date: 20150930
  Transmission Date: 20151125
  Serious: Yes (Other)
  Sender: FDA-Public Use
  Company Number: US-EMD SERONO-7247241

PATIENT
  Age: 12 Year
  Sex: Male
  Weight: 40 kg

DRUGS (2)
  1. SAIZEN [Suspect]
     Active Substance: SOMATROPIN
     Indication: BODY HEIGHT BELOW NORMAL
     Route: 058
     Dates: start: 20101202
  2. SAIZEN [Suspect]
     Active Substance: SOMATROPIN
     Indication: GROWTH HORMONE DEFICIENCY
     Route: 058

REACTIONS (7)
  - Scoliosis [Unknown]
  - Blood creatinine decreased [Recovering/Resolving]
  - Blood follicle stimulating hormone decreased [Unknown]
  - Lordosis [Unknown]
  - Blood glucose increased [Unknown]
  - Kyphosis [Unknown]
  - Pulmonary hypoplasia [Not Recovered/Not Resolved]

NARRATIVE: CASE EVENT DATE: 20110713
